FAERS Safety Report 4725843-6 (Version None)
Quarter: 2005Q3

REPORT INFORMATION
  Report Type: 
  Country: None (occurrence: None)
  Receive Date: 20050722
  Receipt Date: 20050722
  Transmission Date: 20060218
  Serious: Yes (Hospitalization)
  Sender: FDA-Public Use
  Company Number: None

PATIENT
  Sex: Female
  Weight: 85.2762 kg

DRUGS (5)
  1. AREDIA [Suspect]
     Indication: BREAST CANCER
     Dosage: 4UG IV Q 28 D
     Route: 042
  2. AREDIA [Suspect]
     Indication: METASTASES TO BONE
     Dosage: 4UG IV Q 28 D
     Route: 042
  3. AMOMATASE INHIBITOR [Concomitant]
  4. ZOMETA [Suspect]
     Indication: BREAST CANCER
     Dosage: 4 MG IV Q 28 D
     Route: 042
  5. ZOMETA [Suspect]
     Indication: METASTASES TO BONE
     Dosage: 4 MG IV Q 28 D
     Route: 042

REACTIONS (2)
  - BREAST CANCER METASTATIC [None]
  - OSTEONECROSIS [None]
